FAERS Safety Report 7918450-5 (Version None)
Quarter: 2011Q4

REPORT INFORMATION
  Report Type: 
  Country: None (occurrence: None)
  Receive Date: 20111116
  Receipt Date: 20111108
  Transmission Date: 20120403
  Serious: Yes (Other)
  Sender: FDA-Public Use
  Company Number: PHHY2011FR098571

PATIENT
  Age: 55 Year
  Sex: Female

DRUGS (1)
  1. CLOZAPINE [Suspect]
     Indication: BIPOLAR DISORDER
     Dosage: 200 MG, QD

REACTIONS (4)
  - URINARY TRACT INFECTION [None]
  - DIABETES MELLITUS [None]
  - DYSURIA [None]
  - CONSTIPATION [None]
